FAERS Safety Report 5560108-4 (Version None)
Quarter: 2007Q4

REPORT INFORMATION
  Report Type: 
  Country: None (occurrence: None)
  Receive Date: 20071214
  Receipt Date: 20071025
  Transmission Date: 20080405
  Serious: No
  Sender: FDA-Public Use
  Company Number: US-ABBOTT-07P-163-0422440-00

PATIENT
  Sex: Female

DRUGS (7)
  1. HUMIRA [Suspect]
     Indication: RHEUMATOID ARTHRITIS
     Route: 058
     Dates: start: 20061001, end: 20070301
  2. HUMIRA [Suspect]
  3. HUMIRA [Suspect]
     Dosage: PEN
     Route: 058
     Dates: start: 20070301, end: 20070501
  4. HUMIRA [Suspect]
     Indication: RHEUMATOID ARTHRITIS
     Route: 058
     Dates: start: 20070301, end: 20070501
  5. PREDNISONE [Concomitant]
     Indication: RHEUMATOID ARTHRITIS
  6. METHOTREXATE [Concomitant]
     Indication: RHEUMATOID ARTHRITIS
     Dates: end: 20070201
  7. HYDROXYCHLOROQUINE PHOSPHATE [Concomitant]
     Indication: RHEUMATOID ARTHRITIS
     Dates: end: 20070801

REACTIONS (6)
  - DIARRHOEA [None]
  - DRUG INEFFECTIVE [None]
  - INJECTION SITE IRRITATION [None]
  - NAUSEA [None]
  - PAIN [None]
  - URINE ODOUR ABNORMAL [None]
